FAERS Safety Report 17265539 (Version 2)
Quarter: 2020Q1

REPORT INFORMATION
  Report Type: Report from Study
  Country: None (occurrence: US)
  Receive Date: 20200114
  Receipt Date: 20200224
  Transmission Date: 20200409
  Serious: Yes (Hospitalization, Other)
  Sender: FDA-Public Use
  Company Number: US-ABBVIE-20P-163-3225054-00

PATIENT
  Sex: Female

DRUGS (3)
  1. IMBRUVICA [Suspect]
     Active Substance: IBRUTINIB
     Indication: DIFFUSE LARGE B-CELL LYMPHOMA
     Route: 048
     Dates: start: 20191125, end: 20191217
  2. BACTRIM [Suspect]
     Active Substance: SULFAMETHOXAZOLE\TRIMETHOPRIM
     Indication: PRODUCT USED FOR UNKNOWN INDICATION
     Route: 065
  3. IMBRUVICA [Suspect]
     Active Substance: IBRUTINIB
     Route: 048
     Dates: start: 20191023

REACTIONS (10)
  - Pneumonia [Unknown]
  - Off label use [Unknown]
  - Blood glucose increased [Unknown]
  - Oxygen saturation decreased [Unknown]
  - Infection [Unknown]
  - Tachycardia [Unknown]
  - Pneumocystis jirovecii pneumonia [Unknown]
  - Heart rate abnormal [Unknown]
  - Pyrexia [Unknown]
  - Vomiting [Unknown]
